FAERS Safety Report 4975647-4 (Version None)
Quarter: 2006Q2

REPORT INFORMATION
  Report Type: 
  Country: None (occurrence: None)
  Receive Date: 20060407
  Receipt Date: 20060329
  Transmission Date: 20061013
  Serious: Yes (Hospitalization)
  Sender: FDA-Public Use
  Company Number: 200610294BFR

PATIENT
  Age: 11 Year
  Sex: Male

DRUGS (3)
  1. CIPROFLOXACIN HCL [Suspect]
     Indication: BACTERIAL INFECTION
     Dosage: 500 MG, BID, INTRAVENOUS
     Route: 042
     Dates: start: 20060115, end: 20060127
  2. TOBRAMYCIN SULFATE [Suspect]
     Indication: BACTERIAL INFECTION
     Dosage: 375 MG, TOTAL DAILY, INTRAVENOUS
     Route: 042
     Dates: start: 20060115, end: 20060127
  3. PIPERACILLIN SODIUM [Suspect]
     Indication: BACTERIAL INFECTION
     Dosage: 25 G, TID, INTRAVENOUS
     Route: 042
     Dates: start: 20060115, end: 20060127

REACTIONS (6)
  - HISTIOCYTOSIS HAEMATOPHAGIC [None]
  - HUMAN HERPES VIRUS 6 SEROLOGY POSITIVE [None]
  - INFECTION [None]
  - PANCYTOPENIA [None]
  - PYREXIA [None]
  - SERUM FERRITIN INCREASED [None]
